FAERS Safety Report 10793310 (Version 1)
Quarter: 2015Q1

REPORT INFORMATION
  Report Type: Spontaneous
  Country: US (occurrence: None)
  Receive Date: 20150212
  Receipt Date: 20150212
  Transmission Date: 20150721
  Serious: Yes (Hospitalization)
  Sender: FDA-Public Use
  Company Number: None

PATIENT
  Age: 70 Year
  Sex: Female
  Weight: 121.11 kg

DRUGS (18)
  1. LATANOPROST (XALATAN) [Concomitant]
  2. COLESEVELAM (WELCHOL) [Concomitant]
  3. PRIMIDONE. [Concomitant]
     Active Substance: PRIMIDONE
  4. BISOPROLOL-HYDROCHLOROTHIAZIDE [Concomitant]
  5. GLIPIZIDE. [Concomitant]
     Active Substance: GLIPIZIDE
  6. MORPHINE SULFATE. [Concomitant]
     Active Substance: MORPHINE SULFATE
  7. MELOXICAM. [Concomitant]
     Active Substance: MELOXICAM
  8. LOPERAMIDE [Concomitant]
     Active Substance: LOPERAMIDE
  9. ALBUTEROL 90 MCG/ACTUATION AERO [Concomitant]
  10. LISINOPRIL. [Concomitant]
     Active Substance: LISINOPRIL
  11. ISRADIPINE. [Concomitant]
     Active Substance: ISRADIPINE
  12. CEFEPIME [Suspect]
     Active Substance: CEFEPIME\CEFEPIME HYDROCHLORIDE
     Indication: PNEUMONIA
     Dates: start: 20141008, end: 20141015
  13. TIOTROPIUM (SPIRIVA WITH HANDIHALER) [Concomitant]
  14. MONTELUKAST (SINGULAIR) [Concomitant]
  15. DULOXETINE (CYMBALTA) [Concomitant]
  16. PREGABALIN. [Concomitant]
     Active Substance: PREGABALIN
  17. OMEPRAZOLE. [Concomitant]
     Active Substance: OMEPRAZOLE
  18. ALBUTEROL (PROVENTIL) [Concomitant]

REACTIONS (6)
  - Mental status changes [None]
  - Acute kidney injury [None]
  - Asthenia [None]
  - Decreased appetite [None]
  - Lethargy [None]
  - Haemoptysis [None]

NARRATIVE: CASE EVENT DATE: 20141015
